FAERS Safety Report 7486533-2 (Version None)
Quarter: 2011Q2

REPORT INFORMATION
  Report Type: 
  Country: None (occurrence: None)
  Receive Date: 20110517
  Receipt Date: 20110505
  Transmission Date: 20111010
  Serious: Yes (Other)
  Sender: FDA-Public Use
  Company Number: US-UCBSA-031703

PATIENT
  Sex: Female

DRUGS (2)
  1. VIMPAT [Suspect]
     Dosage: 150 MG LOADING DOSE
  2. PHENOBARBITAL TAB [Concomitant]

REACTIONS (1)
  - STATUS EPILEPTICUS [None]
